FAERS Safety Report 25336858 (Version 1)
Quarter: 2025Q2

REPORT INFORMATION
  Report Type: Spontaneous
  Country: TW (occurrence: TW)
  Receive Date: 20250520
  Receipt Date: 20250520
  Transmission Date: 20250717
  Serious: Yes (Other)
  Sender: BAYER HEALTHCARE PHARMACEUTICALS INC.
  Company Number: TW-BAYER-2025A063171

PATIENT
  Age: 52 Year
  Sex: Male

DRUGS (3)
  1. NUBEQA [Suspect]
     Active Substance: DAROLUTAMIDE
     Indication: Hormone-dependent prostate cancer
     Dosage: 600 MG, BID
     Dates: start: 20240509
  2. DOCETAXEL [Concomitant]
     Active Substance: DOCETAXEL
     Indication: Hormone-dependent prostate cancer
     Dosage: 60 MG, Q3WK
     Dates: start: 20240606
  3. PREDNISONE [Concomitant]
     Active Substance: PREDNISONE
     Indication: Hormone-dependent prostate cancer
     Dosage: UNK UNK, Q3WK
     Dates: start: 20240606

REACTIONS (3)
  - Leukopenia [None]
  - Prostate sarcoma [None]
  - Hepatectomy [None]

NARRATIVE: CASE EVENT DATE: 20240101
